APPROVED DRUG PRODUCT: BENAZEPRIL HYDROCHLORIDE AND HYDROCHLOROTHIAZIDE
Active Ingredient: BENAZEPRIL HYDROCHLORIDE; HYDROCHLOROTHIAZIDE
Strength: 5MG;6.25MG
Dosage Form/Route: TABLET;ORAL
Application: A078794 | Product #001 | TE Code: AB
Applicant: APOTEX INC
Approved: Aug 21, 2014 | RLD: No | RS: No | Type: RX